FAERS Safety Report 17783325 (Version 1)
Quarter: 2020Q2

REPORT INFORMATION
  Report Type: Spontaneous
  Country: US (occurrence: US)
  Receive Date: 20200513
  Receipt Date: 20200513
  Transmission Date: 20200714
  Serious: Yes (Hospitalization)
  Sender: FDA-Public Use
  Company Number: None

PATIENT
  Age: 63 Year
  Sex: Male
  Weight: 85.73 kg

DRUGS (1)
  1. DAPTOMYCIN (DAPTOMYCIN 500MG/VIL INJ) [Suspect]
     Active Substance: DAPTOMYCIN
     Indication: OSTEOMYELITIS
     Route: 042
     Dates: start: 20191030, end: 20191112

REACTIONS (5)
  - Acute kidney injury [None]
  - Rhabdomyolysis [None]
  - Asthenia [None]
  - Muscular weakness [None]
  - Hepatic enzyme increased [None]

NARRATIVE: CASE EVENT DATE: 20191112
